FAERS Safety Report 24739940 (Version 1)
Quarter: 2024Q4

REPORT INFORMATION
  Report Type: Spontaneous
  Country: US (occurrence: US)
  Receive Date: 20241216
  Receipt Date: 20241216
  Transmission Date: 20250115
  Serious: Yes (Other)
  Sender: PFIZER
  Company Number: US-PFIZER INC-202400321434

PATIENT
  Age: 73 Year
  Sex: Male

DRUGS (2)
  1. VYNDAQEL [Suspect]
     Active Substance: TAFAMIDIS MEGLUMINE
     Indication: Amyloidosis
     Dosage: FOUR 20MG CAPSULES ONCE A DAY
     Dates: start: 2024
  2. METHOTREXATE SODIUM [Suspect]
     Active Substance: METHOTREXATE SODIUM
     Indication: Psoriasis
     Dosage: 0.5 ML, WEEKLY
     Dates: start: 2004

REACTIONS (2)
  - Pulmonary congestion [Not Recovered/Not Resolved]
  - Anxiety [Unknown]
